FAERS Safety Report 5014344-6 (Version None)
Quarter: 2006Q2

REPORT INFORMATION
  Report Type: 
  Country: None (occurrence: None)
  Receive Date: 20060411
  Receipt Date: 20060214
  Transmission Date: 20061013
  Serious: No
  Sender: FDA-Public Use
  Company Number: A03200600885

PATIENT
  Sex: Male

DRUGS (2)
  1. UROXATRAL [Suspect]
     Dosage: 10 MG QD OD ORAL
     Route: 048
  2. AVODART [Suspect]

REACTIONS (1)
  - DIARRHOEA [None]
